FAERS Safety Report 4635736-0 (Version None)
Quarter: 2005Q2

REPORT INFORMATION
  Report Type: 
  Country: None (occurrence: None)
  Receive Date: 20050413
  Receipt Date: 20050407
  Transmission Date: 20051028
  Serious: Yes (Other)
  Sender: FDA-Public Use
  Company Number: CIP05000790

PATIENT
  Age: 74 Year
  Sex: Female

DRUGS (5)
  1. ACTONEL [Suspect]
     Dosage: 35 MG ONCE WEEKLY, ORAL
     Route: 048
     Dates: end: 20050201
  2. ACTONEL [Suspect]
     Dosage: DAILY, ORAL
     Route: 048
     Dates: start: 20000101
  3. FLEXERIL [Concomitant]
  4. VICODIN [Concomitant]
  5. CALCIUM WITH VITAMIN D (ERGOCALCIFEROL, CALCIUM SODIUM LACTATE, CALCIU [Concomitant]

REACTIONS (4)
  - CATARACT [None]
  - FALL [None]
  - HIP FRACTURE [None]
  - LOWER LIMB FRACTURE [None]
